FAERS Safety Report 4706223-6 (Version None)
Quarter: 2005Q2

REPORT INFORMATION
  Report Type: 
  Country: None (occurrence: None)
  Receive Date: 20050627
  Receipt Date: 20050505
  Transmission Date: 20051028
  Serious: No
  Sender: FDA-Public Use
  Company Number: IND-AE-05-SAN-021

PATIENT
  Age: 63 Year
  Sex: Female
  Weight: 77.1115 kg

DRUGS (6)
  1. SANCTURA [Suspect]
     Indication: HYPERTONIC BLADDER
     Dosage: 20MG - QD - ORAL
     Route: 048
     Dates: start: 20050421, end: 20050422
  2. SANCTURA [Suspect]
     Indication: HYPERTONIC BLADDER
     Dosage: 20MG - BID-ORAL
     Route: 048
     Dates: start: 20050422, end: 20050423
  3. SANCTURA [Suspect]
     Indication: HYPERTONIC BLADDER
     Dosage: 20MG - QD-ORAL
     Route: 048
     Dates: start: 20050423, end: 20050501
  4. SYNTHROID [Concomitant]
  5. COUMADIN [Concomitant]
  6. ADVAIR DISKUS 100/50 [Concomitant]

REACTIONS (4)
  - DYSGEUSIA [None]
  - DYSPEPSIA [None]
  - FREQUENT BOWEL MOVEMENTS [None]
  - PALPITATIONS [None]
